FAERS Safety Report 24901068 (Version 2)
Quarter: 2025Q2

REPORT INFORMATION
  Report Type: Other
  Country: US (occurrence: US)
  Receive Date: 20250129
  Receipt Date: 20250506
  Transmission Date: 20250717
  Serious: No
  Sender: TRAVERE THERAPEUTICS
  Company Number: US-TRAVERE-2025TVT00002

PATIENT
  Sex: Male

DRUGS (1)
  1. FILSPARI [Suspect]
     Active Substance: SPARSENTAN
     Indication: IgA nephropathy
     Route: 048

REACTIONS (3)
  - Urine protein/creatinine ratio increased [Recovering/Resolving]
  - Nerve compression [Unknown]
  - Osteoporosis [Unknown]
